FAERS Safety Report 11511205 (Version 8)
Quarter: 2017Q2

REPORT INFORMATION
  Report Type: Report from Study
  Country: DE (occurrence: DE)
  Receive Date: 20150915
  Receipt Date: 20170424
  Transmission Date: 20170829
  Serious: Yes (Hospitalization)
  Sender: FDA-Public Use
  Company Number: PHHO2015DE010121

PATIENT
  Age: 61 Year
  Sex: Female
  Weight: 90 kg

DRUGS (8)
  1. AFINITOR [Suspect]
     Active Substance: EVEROLIMUS
     Indication: BREAST CANCER
     Dosage: 10 MG, UNK
     Route: 048
     Dates: start: 20150402, end: 20150725
  2. METOPROLOL RATIOPHARM SUCCINAT [Concomitant]
     Indication: PERIPHERAL VASCULAR DISORDER
     Dosage: 95 MG, BID
     Route: 048
     Dates: start: 20070101
  3. RAMIPRIL BETA [Concomitant]
     Active Substance: RAMIPRIL
     Indication: PERIPHERAL VASCULAR DISORDER
     Dosage: 5 MG, QD
     Route: 048
     Dates: start: 20131101
  4. XGEVA [Concomitant]
     Active Substance: DENOSUMAB
     Indication: METASTASES TO BONE
     Dosage: 120 MG, QMO
     Route: 058
     Dates: start: 20140424
  5. EXEMESTANE. [Suspect]
     Active Substance: EXEMESTANE
     Indication: BREAST CANCER
     Dosage: 25 MG, UNK
     Route: 048
     Dates: start: 20150402, end: 20150725
  6. VELMETIA [Concomitant]
     Active Substance: METFORMIN\SITAGLIPTIN
     Indication: DIABETES MELLITUS
     Dosage: 50 MG, BID
     Route: 048
     Dates: start: 20130101
  7. VELMETIA [Concomitant]
     Active Substance: METFORMIN\SITAGLIPTIN
     Dosage: 850 MG, QD
     Route: 048
     Dates: start: 20150603
  8. CALCICARE [Concomitant]
     Indication: METASTASES TO BONE
     Dosage: 600 MG, QD
     Route: 048
     Dates: start: 20140101

REACTIONS (4)
  - Dizziness [Recovered/Resolved with Sequelae]
  - Erysipelas [Recovered/Resolved]
  - Lymphangitis [Recovered/Resolved]
  - Vertigo [Recovering/Resolving]

NARRATIVE: CASE EVENT DATE: 20150522
